FAERS Safety Report 13756604 (Version 8)
Quarter: 2018Q3

REPORT INFORMATION
  Report Type: Report from Study
  Country: US (occurrence: US)
  Receive Date: 20170714
  Receipt Date: 20180816
  Transmission Date: 20181010
  Serious: Yes (Hospitalization, Other)
  Sender: FDA-Public Use
  Company Number: US-GILEAD-2017-0273923

PATIENT
  Age: 66 Year
  Sex: Female

DRUGS (9)
  1. ORENITRAM [Suspect]
     Active Substance: TREPROSTINIL
     Dosage: UNK
     Route: 065
     Dates: start: 20180601
  2. ADCIRCA [Suspect]
     Active Substance: TADALAFIL
     Indication: PULMONARY HYPERTENSION
     Dosage: 40 MG, QD
     Route: 065
     Dates: start: 20160503
  3. REMODULIN [Suspect]
     Active Substance: TREPROSTINIL
     Dosage: 0.014 UG/KG
     Route: 042
     Dates: start: 20180703
  4. AMBRISENTAN [Suspect]
     Active Substance: AMBRISENTAN
     Indication: PULMONARY ARTERIAL HYPERTENSION
     Dosage: 10 MG, QD
     Route: 065
     Dates: start: 20160818
  5. ORENITRAM [Suspect]
     Active Substance: TREPROSTINIL
     Dosage: 3.75 MG, TID
     Route: 065
     Dates: start: 20180511
  6. REMODULIN [Suspect]
     Active Substance: TREPROSTINIL
     Indication: PULMONARY ARTERIAL HYPERTENSION
     Dosage: 12 NG/KG
     Route: 042
  7. REMODULIN [Suspect]
     Active Substance: TREPROSTINIL
     Dosage: 16 NG/KG/MIN
     Route: 042
  8. ORENITRAM [Suspect]
     Active Substance: TREPROSTINIL
     Indication: PULMONARY ARTERIAL HYPERTENSION
     Dosage: 4.5 MG, UNK
     Route: 065
     Dates: start: 20170503
  9. ORENITRAM [Suspect]
     Active Substance: TREPROSTINIL
     Dosage: 3.5 MG, QD
     Route: 065
     Dates: start: 20180504

REACTIONS (12)
  - Chest pain [Not Recovered/Not Resolved]
  - Epistaxis [Recovered/Resolved]
  - Oxygen saturation decreased [Unknown]
  - Flushing [Unknown]
  - Headache [Not Recovered/Not Resolved]
  - Epistaxis [Recovered/Resolved]
  - Dizziness [Recovered/Resolved]
  - Fatigue [Not Recovered/Not Resolved]
  - Pain in jaw [Unknown]
  - Pain [Unknown]
  - Abdominal discomfort [Recovered/Resolved]
  - Diarrhoea [Not Recovered/Not Resolved]

NARRATIVE: CASE EVENT DATE: 20170517
